FAERS Safety Report 9271200 (Version 1)
Quarter: 2013Q2

REPORT INFORMATION
  Report Type: Report from Study
  Country: MX (occurrence: MX)
  Receive Date: 20130506
  Receipt Date: 20130506
  Transmission Date: 20140414
  Serious: Yes (Death)
  Sender: FDA-Public Use
  Company Number: PHHY2013MX044061

PATIENT
  Age: 73 Year
  Sex: Male

DRUGS (1)
  1. CO-DIOVAN [Suspect]
     Indication: HYPERTENSION
     Dosage: 2 DF, DAILY (80 MG VALS AND 12.5 MG HCT)
     Route: 048
     Dates: start: 20070208, end: 201001

REACTIONS (1)
  - Death [Fatal]
